FAERS Safety Report 10192998 (Version 1)
Quarter: 2014Q2

REPORT INFORMATION
  Report Type: Spontaneous
  Country: IT (occurrence: IT)
  Receive Date: 20140524
  Receipt Date: 20140524
  Transmission Date: 20141212
  Serious: Yes (Hospitalization, Other)
  Sender: FDA-Public Use
  Company Number: PHHY2014IT062522

PATIENT
  Age: 15 Year
  Sex: Male
  Weight: 65 kg

DRUGS (16)
  1. CICLOSPORIN [Suspect]
     Indication: IMMUNOSUPPRESSION
  2. MYCOPHENOLATE [Suspect]
     Indication: IMMUNOSUPPRESSION
  3. PREDNISOLONE [Suspect]
     Indication: IMMUNOSUPPRESSION
  4. AMIODARONE [Suspect]
     Indication: SUPRAVENTRICULAR TACHYARRHYTHMIA
  5. LIDOCAINE [Suspect]
  6. MAGNESIUM [Suspect]
     Route: 041
  7. NITRIC OXIDE [Concomitant]
     Route: 055
  8. EPINEPHRINE [Concomitant]
  9. NOREPINEPHRINE [Concomitant]
  10. DOBUTAMINE [Concomitant]
     Route: 042
  11. DOPAMINE [Concomitant]
     Route: 042
  12. LEVOSIMENDAN [Concomitant]
  13. MILRINONE [Concomitant]
     Route: 042
  14. DIURETICS [Concomitant]
     Route: 048
  15. ASPIRIN [Concomitant]
     Route: 048
  16. WARFARIN [Concomitant]
     Route: 048

REACTIONS (5)
  - Ventricular tachyarrhythmia [Unknown]
  - Supraventricular tachyarrhythmia [Unknown]
  - Transplant rejection [Unknown]
  - Thyroid disorder [Unknown]
  - Cytomegalovirus infection [Unknown]
